FAERS Safety Report 5689518-1 (Version None)
Quarter: 2008Q1

REPORT INFORMATION
  Report Type: 
  Country: None (occurrence: None)
  Receive Date: 20080331
  Receipt Date: 20080319
  Transmission Date: 20080703
  Serious: Yes (Hospitalization)
  Sender: FDA-Public Use
  Company Number: US-PFIZER INC-2008026145

PATIENT
  Age: 64 Year
  Sex: Male

DRUGS (3)
  1. ZYVOX [Suspect]
     Indication: WOUND INFECTION STAPHYLOCOCCAL
     Route: 048
  2. ASPIRIN [Concomitant]
     Indication: CORONARY ARTERY DISEASE
     Route: 048
  3. PLETAL [Concomitant]
     Indication: PERIPHERAL ARTERIAL OCCLUSIVE DISEASE
     Route: 048

REACTIONS (4)
  - ANAEMIA [None]
  - ASTHENIA [None]
  - MALAISE [None]
  - VISUAL DISTURBANCE [None]
